FAERS Safety Report 5295772-0 (Version None)
Quarter: 2007Q2

REPORT INFORMATION
  Report Type: 
  Country: None (occurrence: None)
  Receive Date: 20070413
  Receipt Date: 20070402
  Transmission Date: 20071010
  Serious: Yes (Other)
  Sender: FDA-Public Use
  Company Number: PHBS2007AT04444

PATIENT
  Sex: Male

DRUGS (2)
  1. CLOZAPINE [Suspect]
     Indication: SCHIZOPHRENIA
     Dosage: 150MG ONCE DAILY
     Route: 048
     Dates: start: 20050101
  2. CLOZAPINE [Suspect]
     Dosage: 0-0-1

REACTIONS (7)
  - BLOOD CALCIUM INCREASED [None]
  - BLOOD CHLORIDE INCREASED [None]
  - BLOOD CHOLESTEROL INCREASED [None]
  - BLOOD CREATININE INCREASED [None]
  - BLOOD URIC ACID INCREASED [None]
  - EOSINOPENIA [None]
  - MEAN CELL HAEMOGLOBIN CONCENTRATION [None]
